FAERS Safety Report 7264897-2 (Version None)
Quarter: 2011Q1

REPORT INFORMATION
  Report Type: 
  Country: None (occurrence: None)
  Receive Date: 20110131
  Receipt Date: 20110120
  Transmission Date: 20110831
  Serious: Yes (Other)
  Sender: FDA-Public Use
  Company Number: CA-JNJFOC-20110106114

PATIENT
  Age: 85 Year
  Sex: Male
  Weight: 74.8 kg

DRUGS (1)
  1. REMICADE [Suspect]
     Indication: ILL-DEFINED DISORDER
     Dosage: FOR 10 YEARS
     Route: 042

REACTIONS (5)
  - BILE DUCT OBSTRUCTION [None]
  - NAUSEA [None]
  - BACK PAIN [None]
  - VOMITING [None]
  - INFUSION RELATED REACTION [None]
